FAERS Safety Report 4896252-4 (Version None)
Quarter: 2006Q1

REPORT INFORMATION
  Report Type: 
  Country: None (occurrence: None)
  Receive Date: 20060126
  Receipt Date: 20060118
  Transmission Date: 20060701
  Serious: Yes (Hospitalization)
  Sender: FDA-Public Use
  Company Number: 2005-04081

PATIENT
  Age: 47 Year
  Sex: Male

DRUGS (3)
  1. NORTRIPTYLINE HCL [Suspect]
     Indication: LUMBAR RADICULOPATHY
     Dosage: 75MG, QHS, ORAL
     Route: 048
     Dates: start: 20050928, end: 20051001
  2. INDAPAMIDE [Concomitant]
  3. NAPROXEN SODIUM [Concomitant]

REACTIONS (7)
  - BLOOD CREATINE PHOSPHOKINASE INCREASED [None]
  - BLOOD CREATINE PHOSPHOKINASE MB INCREASED [None]
  - CHEST PAIN [None]
  - DYSPEPSIA [None]
  - HYPERHIDROSIS [None]
  - NAUSEA [None]
  - PULMONARY MASS [None]
